FAERS Safety Report 9066360 (Version 2)
Quarter: 2013Q2

REPORT INFORMATION
  Report Type: Report from Study
  Country: US (occurrence: US)
  Receive Date: 20130214
  Receipt Date: 20130426
  Transmission Date: 20140414
  Serious: Yes (Hospitalization)
  Sender: FDA-Public Use
  Company Number: US-SANOFI-AVENTIS-2013SA007871

PATIENT
  Age: 75 Year
  Sex: Female
  Weight: 60.3 kg

DRUGS (10)
  1. DOCETAXEL [Suspect]
     Indication: NON-SMALL CELL LUNG CANCER STAGE IV
     Route: 051
     Dates: start: 20121002, end: 20121017
  2. BLINDED THERAPY [Suspect]
     Indication: NON-SMALL CELL LUNG CANCER STAGE IV
     Route: 051
     Dates: start: 20121002, end: 20121002
  3. LISINOPRIL [Concomitant]
     Dates: start: 201102
  4. METOPROLOL [Concomitant]
     Dates: start: 201102
  5. EMLA [Concomitant]
     Dates: start: 20120423
  6. TYLENOL [Concomitant]
     Dates: start: 20120928
  7. DEXAMETHASONE [Concomitant]
     Dates: start: 20121002
  8. DIPHENHYDRAMINE HYDROCHLORIDE [Concomitant]
     Dates: start: 20121002
  9. ALOXI [Concomitant]
     Dates: start: 20121002
  10. PEPCID [Concomitant]
     Dates: start: 20121002

REACTIONS (1)
  - Febrile neutropenia [Recovered/Resolved]
